FAERS Safety Report 20495806 (Version 1)
Quarter: 2022Q1

REPORT INFORMATION
  Report Type: Other
  Country: LB (occurrence: None)
  Receive Date: 20220221
  Receipt Date: 20220221
  Transmission Date: 20220423
  Serious: Yes (Other)
  Sender: FDA-Public Use
  Company Number: LB-ROCHE-3023624

PATIENT
  Age: 26 Year
  Sex: Male

DRUGS (2)
  1. ACTEMRA [Suspect]
     Active Substance: TOCILIZUMAB
     Indication: Rheumatoid arthritis
     Route: 058
     Dates: start: 20201113
  2. CORTICOSTEROID NOS [Concomitant]
     Active Substance: CORTICOSTEROID NOS

REACTIONS (7)
  - Syncope [Unknown]
  - Pyrexia [Unknown]
  - Oedema [Unknown]
  - Asthenia [Unknown]
  - Weight decreased [Unknown]
  - Chills [Unknown]
  - Pain [Unknown]

NARRATIVE: CASE EVENT DATE: 20220201
